FAERS Safety Report 19892879 (Version 3)
Quarter: 2021Q4

REPORT INFORMATION
  Report Type: Spontaneous
  Country: GB (occurrence: GB)
  Receive Date: 20210928
  Receipt Date: 20211123
  Transmission Date: 20220303
  Serious: Yes (Other)
  Sender: FDA-Public Use
  Company Number: GB-VER-202100054

PATIENT
  Sex: Male

DRUGS (1)
  1. TRIPTORELIN PAMOATE [Suspect]
     Active Substance: TRIPTORELIN PAMOATE
     Indication: Product used for unknown indication
     Dosage: DOSE NOT REPORTED
     Route: 065

REACTIONS (1)
  - Terminal state [Unknown]
